FAERS Safety Report 8333960-7 (Version None)
Quarter: 2012Q2

REPORT INFORMATION
  Report Type: 
  Country: None (occurrence: None)
  Receive Date: 20120503
  Receipt Date: 20120422
  Transmission Date: 20120825
  Serious: Yes (Death)
  Sender: FDA-Public Use
  Company Number: SI-ACTELION-A-CH2012-63192

PATIENT
  Sex: Male

DRUGS (5)
  1. RAMIPRIL [Concomitant]
  2. EUTHYROX [Concomitant]
  3. TRACLEER [Suspect]
     Dosage: 62.5 MG, BID
     Route: 048
     Dates: start: 20090921, end: 20091019
  4. AMIODARONE HCL [Concomitant]
  5. TRACLEER [Suspect]
     Indication: PULMONARY ARTERIAL HYPERTENSION
     Dosage: 125 MG, BID
     Route: 048
     Dates: start: 20091020, end: 20120301

REACTIONS (4)
  - VENTRICULAR TACHYCARDIA [None]
  - VENTRICULAR FIBRILLATION [None]
  - ARRHYTHMIA [None]
  - CARDIAC ARREST [None]
